FAERS Safety Report 10595452 (Version 2)
Quarter: 2014Q4

REPORT INFORMATION
  Report Type: Spontaneous
  Country: US (occurrence: None)
  Receive Date: 20141118
  Receipt Date: 20141128
  Transmission Date: 20150529
  Serious: Yes (Hospitalization, Other)
  Sender: FDA-Public Use
  Company Number: US-001401N

PATIENT
  Age: 56 Year
  Sex: Male

DRUGS (2)
  1. GATTEX [Suspect]
     Active Substance: TEDUGLUTIDE\WATER
     Indication: SHORT-BOWEL SYNDROME
     Dosage: DF
     Route: 058
     Dates: end: 201410
  2. SOLUTIONS FOR PARENTERAL NUTRITION [Concomitant]
     Active Substance: AMINO ACIDS\DEXTROSE\ELECTROLYTES NOS

REACTIONS (8)
  - Tremor [None]
  - Middle insomnia [None]
  - Feeling cold [None]
  - Confusional state [None]
  - Device related infection [None]
  - Pyrexia [None]
  - Chills [None]
  - Feeling hot [None]

NARRATIVE: CASE EVENT DATE: 20141022
